FAERS Safety Report 14978835 (Version 1)
Quarter: 2018Q2

REPORT INFORMATION
  Report Type: Spontaneous
  Country: US (occurrence: US)
  Receive Date: 20180515
  Receipt Date: 20180515
  Transmission Date: 20180711
  Serious: No
  Sender: FDA-Public Use
  Company Number: None

PATIENT
  Age: 23 Year
  Sex: Female

DRUGS (1)
  1. LUPRON [Suspect]
     Active Substance: LEUPROLIDE ACETATE
     Indication: ENDOMETRIOSIS
     Dosage: ?          OTHER FREQUENCY:QMN;?
     Route: 030
     Dates: start: 20180426

REACTIONS (3)
  - Mood altered [None]
  - Irritability [None]
  - Impatience [None]

NARRATIVE: CASE EVENT DATE: 20180426
